FAERS Safety Report 19306357 (Version 1)
Quarter: 2021Q2

REPORT INFORMATION
  Report Type: Spontaneous
  Country: US (occurrence: US)
  Receive Date: 20210525
  Receipt Date: 20210525
  Transmission Date: 20210717
  Serious: Yes (Other)
  Sender: FDA-Public Use
  Company Number: None

PATIENT
  Age: 48 Year
  Sex: Female

DRUGS (7)
  1. XULANE [Concomitant]
     Active Substance: ETHINYL ESTRADIOL\NORELGESTROMIN
  2. HYOSCYAMINE. [Concomitant]
     Active Substance: HYOSCYAMINE
  3. IBUPROFEN. [Concomitant]
     Active Substance: IBUPROFEN
  4. FLUOXETINE [Concomitant]
     Active Substance: FLUOXETINE HYDROCHLORIDE
  5. PROMACTA [Suspect]
     Active Substance: ELTROMBOPAG OLAMINE
     Indication: MULTIPLE SCLEROSIS
     Route: 048
     Dates: start: 20210317
  6. LISINOPRIL. [Concomitant]
     Active Substance: LISINOPRIL
  7. OXYBUTYNIN. [Concomitant]
     Active Substance: OXYBUTYNIN CHLORIDE

REACTIONS (1)
  - Throat cancer [None]

NARRATIVE: CASE EVENT DATE: 20210524
